FAERS Safety Report 4289851-4 (Version None)
Quarter: 2004Q1

REPORT INFORMATION
  Report Type: 
  Country: None (occurrence: None)
  Receive Date: 20040209
  Receipt Date: 20030610
  Transmission Date: 20041129
  Serious: No
  Sender: FDA-Public Use
  Company Number: US-GLAXOSMITHKLINE-A0411660A

PATIENT
  Age: 7 Year
  Sex: Female
  Weight: 29.1 kg

DRUGS (2)
  1. PAXIL [Suspect]
     Route: 048
     Dates: start: 20030401
  2. PAXIL [Suspect]

REACTIONS (2)
  - ANXIETY [None]
  - PERSONALITY CHANGE [None]
